FAERS Safety Report 13790678 (Version 1)
Quarter: 2017Q3

REPORT INFORMATION
  Report Type: Other
  Country: FR (occurrence: FR)
  Receive Date: 20170725
  Receipt Date: 20170725
  Transmission Date: 20171127
  Serious: Yes (Other)
  Sender: FDA-Public Use
  Company Number: FR-ACTELION-A-CH2017-156833

PATIENT
  Age: 44 Year
  Sex: Female
  Weight: 49.89 kg

DRUGS (4)
  1. BOSENTAN. [Suspect]
     Active Substance: BOSENTAN
     Indication: PULMONARY ARTERIAL HYPERTENSION
     Dosage: 250 MG, QD
     Route: 048
  2. EPOPROSTENOL SODIUM. [Suspect]
     Active Substance: EPOPROSTENOL SODIUM
     Indication: PULMONARY ARTERIAL HYPERTENSION
     Dosage: 1 MG, UNK
     Route: 042
  3. TADALAFIL [Concomitant]
     Active Substance: TADALAFIL
     Dosage: 40 MG, QD
  4. FLUINDIONE [Concomitant]
     Active Substance: FLUINDIONE
     Dosage: 20 MG, QD

REACTIONS (15)
  - Retinal detachment [Recovering/Resolving]
  - Xanthopsia [Recovering/Resolving]
  - Metamorphopsia [Recovering/Resolving]
  - Macular fibrosis [Recovering/Resolving]
  - Uterine haemorrhage [Unknown]
  - Vision blurred [Recovering/Resolving]
  - Conjunctival hyperaemia [Unknown]
  - Elschnig^s bodies [Recovered/Resolved]
  - Epistaxis [Unknown]
  - Blood pressure decreased [Unknown]
  - Flushing [Unknown]
  - Hyperhidrosis [Unknown]
  - Visual acuity reduced [Recovering/Resolving]
  - Blindness transient [Recovering/Resolving]
  - Episcleral hyperaemia [Unknown]
